FAERS Safety Report 25166040 (Version 1)
Quarter: 2025Q2

REPORT INFORMATION
  Report Type: Spontaneous
  Country: IT (occurrence: IT)
  Receive Date: 20250407
  Receipt Date: 20250407
  Transmission Date: 20250717
  Serious: Yes (Other)
  Sender: BIOCON
  Company Number: IT-BIOCON BIOLOGICS LIMITED-BBL2025001873

PATIENT

DRUGS (1)
  1. ADALIMUMAB [Suspect]
     Active Substance: ADALIMUMAB
     Indication: Juvenile idiopathic arthritis
     Route: 065

REACTIONS (1)
  - Haemorrhagic vasculitis [Recovered/Resolved]
